FAERS Safety Report 7153093-5 (Version None)
Quarter: 2010Q4

REPORT INFORMATION
  Report Type: 
  Country: None (occurrence: None)
  Receive Date: 20101213
  Receipt Date: 20101129
  Transmission Date: 20110411
  Serious: Yes (Hospitalization, Other)
  Sender: FDA-Public Use
  Company Number: PHHY2010CA75264

PATIENT
  Age: 69 Year
  Sex: Female

DRUGS (3)
  1. DIOVAN [Suspect]
     Indication: HYPERTENSION
     Dosage: 80 MG, QD
     Dates: end: 20100930
  2. DIOVAN [Suspect]
     Dosage: 20 MG DAILY
  3. CELEBREX [Concomitant]
     Indication: ARTHRALGIA
     Dosage: 200 MG DAILY
     Dates: start: 20101010, end: 20101024

REACTIONS (7)
  - ABDOMINAL PAIN UPPER [None]
  - BLOOD PRESSURE SYSTOLIC DECREASED [None]
  - CARDIAC ENZYMES INCREASED [None]
  - FATIGUE [None]
  - HEADACHE [None]
  - HYPERTENSIVE CRISIS [None]
  - HYPOTHYROIDISM [None]
